FAERS Safety Report 16528521 (Version 1)
Quarter: 2019Q3

REPORT INFORMATION
  Report Type: Spontaneous
  Country: BJ (occurrence: BJ)
  Receive Date: 20190703
  Receipt Date: 20190703
  Transmission Date: 20191004
  Serious: Yes (Other)
  Sender: FDA-Public Use
  Company Number: BJ-FRESENIUS KABI-FK201907281

PATIENT
  Sex: Female

DRUGS (2)
  1. ATROPINE (MANUFACTURER UNKNOWN) [Suspect]
     Active Substance: ATROPINE
     Indication: PRODUCT USED FOR UNKNOWN INDICATION
     Route: 037
  2. BUPIVACAINE. [Concomitant]
     Active Substance: BUPIVACAINE
     Indication: PRODUCT USED FOR UNKNOWN INDICATION
     Dosage: UNKNOWN
     Route: 065

REACTIONS (5)
  - Confusional state [Recovered/Resolved]
  - Exposure during pregnancy [Recovered/Resolved]
  - Agitation [Recovered/Resolved]
  - Medication error [Recovered/Resolved]
  - Headache [Recovered/Resolved]
